FAERS Safety Report 9513184 (Version 1)
Quarter: 2013Q1

REPORT INFORMATION
  Report Type: Spontaneous
  Country: US (occurrence: None)
  Receive Date: 20130305
  Receipt Date: 20130305
  Transmission Date: 20140127
  Serious: Yes (Hospitalization)
  Sender: FDA-Public Use
  Company Number: 163-21880-12010460

PATIENT
  Age: 78 Year
  Sex: Female
  Weight: 88.45 kg

DRUGS (8)
  1. REVLIMID (LENALIDOMIDE) (CAPSULES) [Suspect]
     Indication: PLASMA CELL MYELOMA
     Route: 048
     Dates: start: 20110912
  2. STEROIDS (CORTICOSTEROIDS) [Concomitant]
  3. TRAMADOL HYDROCHLORIDE (TRAMADOL HYDROCHLORIDE) [Concomitant]
  4. MECLIZINE HCL (MECLOZINE HYDROCHLORIDE) [Concomitant]
  5. ESOMEPRAZOLE MAGNESIUM (ESOMEPRAZOLE MAGNESIUM0 [Concomitant]
  6. ONDANSETRON HCL (ONDANSETRON HYDROCHLORIDE) [Concomitant]
  7. VITAMINS [Concomitant]
  8. ASPIRIN (ACETYLSALICYLIC ACID) [Concomitant]

REACTIONS (2)
  - Pneumonia [None]
  - Local swelling [None]
